FAERS Safety Report 6901045-X (Version None)
Quarter: 2010Q3

REPORT INFORMATION
  Report Type: 
  Country: None (occurrence: None)
  Receive Date: 20100730
  Receipt Date: 20100722
  Transmission Date: 20110219
  Serious: Yes (Hospitalization)
  Sender: FDA-Public Use
  Company Number: 2010EU003586

PATIENT
  Sex: Female
  Weight: 71 kg

DRUGS (3)
  1. PROGRAF [Suspect]
     Indication: RENAL TRANSPLANT
     Dosage: 2 MG, UID/QD, ORAL
     Route: 048
     Dates: start: 20100716, end: 20100721
  2. CELLCEPT [Concomitant]
  3. PREDNISOLONE [Concomitant]

REACTIONS (1)
  - GUILLAIN-BARRE SYNDROME [None]
